FAERS Safety Report 22589373 (Version 1)
Quarter: 2023Q2

REPORT INFORMATION
  Report Type: Spontaneous
  Country: US (occurrence: US)
  Receive Date: 20230612
  Receipt Date: 20230612
  Transmission Date: 20230722
  Serious: Yes (Hospitalization, Other)
  Sender: FDA-Public Use
  Company Number: US-JUBILANT CADISTA PHARMACEUTICALS-2023JUB00225

PATIENT
  Age: 60 Year
  Sex: Male

DRUGS (1)
  1. PREDNISONE [Suspect]
     Active Substance: PREDNISONE
     Indication: Polymyalgia rheumatica
     Dosage: 20 MG, EVERY DAY

REACTIONS (4)
  - Extradural abscess [Recovering/Resolving]
  - Spinal stenosis [Recovering/Resolving]
  - Listeriosis [Recovering/Resolving]
  - Osteomyelitis [Recovering/Resolving]
